FAERS Safety Report 6887005-6 (Version None)
Quarter: 2010Q3

REPORT INFORMATION
  Report Type: 
  Country: None (occurrence: None)
  Receive Date: 20100708
  Receipt Date: 20100308
  Transmission Date: 20110219
  Serious: Yes (Other)
  Sender: FDA-Public Use
  Company Number: 2010030496

PATIENT
  Age: 42 Year
  Sex: Female
  Weight: 86.2 kg

DRUGS (10)
  1. CHANTIX [Suspect]
     Indication: SMOKING CESSATION THERAPY
     Dosage: 0.5 MG, 1 MG, 2X/DAY
     Dates: start: 20100206
  2. CHANTIX [Suspect]
     Indication: SMOKING CESSATION THERAPY
     Dosage: 0.5 MG, 1 MG, 2X/DAY
     Dates: start: 20100301
  3. NAPROSYN [Concomitant]
  4. ASTELIN [Concomitant]
  5. AMLODIPINE [Concomitant]
  6. PRO-AIR (PROCATEROL HYDROCHLORIDE) [Concomitant]
  7. HYDROCODONE BITARTRATE [Concomitant]
  8. SOMA [Concomitant]
  9. RANITIDINE [Concomitant]
  10. GABAPENTIN [Concomitant]

REACTIONS (3)
  - ABDOMINAL PAIN UPPER [None]
  - DYSPNOEA [None]
  - OEDEMA PERIPHERAL [None]
